FAERS Safety Report 8989088 (Version 1)
Quarter: 2012Q4

REPORT INFORMATION
  Report Type: 
  Country: CN (occurrence: CN)
  Receive Date: 20121227
  Receipt Date: 20121227
  Transmission Date: 20130627
  Serious: Yes (Other)
  Sender: FDA-Public Use
  Company Number: PHHY2012CN119636

PATIENT
  Age: 50 Year
  Sex: Male
  Weight: 80 kg

DRUGS (1)
  1. LESCOL [Suspect]
     Indication: HYPERLIPIDAEMIA
     Dosage: 40 mg, QD
     Route: 048
     Dates: start: 20090720, end: 20090724

REACTIONS (1)
  - Lactic acidosis [Recovering/Resolving]
